FAERS Safety Report 7202944-4 (Version None)
Quarter: 2010Q4

REPORT INFORMATION
  Report Type: 
  Country: None (occurrence: None)
  Receive Date: 20101229
  Receipt Date: 20101223
  Transmission Date: 20110411
  Serious: Yes (Other)
  Sender: FDA-Public Use
  Company Number: PHHY2010US87783

PATIENT
  Sex: Male

DRUGS (3)
  1. STALEVO [Suspect]
     Dosage: 150 MG, 5QD
     Route: 048
  2. REQUIP [Concomitant]
  3. ACTOS [Concomitant]

REACTIONS (3)
  - ASTHMA [None]
  - LIBIDO INCREASED [None]
  - MICTURITION URGENCY [None]
